FAERS Safety Report 21578086 (Version 4)
Quarter: 2023Q2

REPORT INFORMATION
  Report Type: Spontaneous
  Country: US (occurrence: US)
  Receive Date: 20221110
  Receipt Date: 20230425
  Transmission Date: 20230721
  Serious: Yes (Other)
  Sender: FDA-Public Use
  Company Number: US-BRISTOL-MYERS SQUIBB COMPANY-2022-133964

PATIENT
  Age: 71 Year
  Sex: Female
  Weight: 68.49 kg

DRUGS (1)
  1. REVLIMID [Suspect]
     Active Substance: LENALIDOMIDE
     Indication: Plasma cell myeloma
     Dosage: FOR 3 WEEKS AND 1 WEEK OFF
     Route: 048
     Dates: start: 20220501

REACTIONS (6)
  - Atrial fibrillation [Unknown]
  - Wrist fracture [Unknown]
  - Neuropathy peripheral [Unknown]
  - Rash [Unknown]
  - Viral infection [Not Recovered/Not Resolved]
  - Pruritus [Unknown]
